FAERS Safety Report 9949782 (Version 1)
Quarter: 2014Q1

REPORT INFORMATION
  Report Type: Report from Study
  Country: US (occurrence: US)
  Receive Date: 20140304
  Receipt Date: 20140304
  Transmission Date: 20141002
  Serious: No
  Sender: FDA-Public Use
  Company Number: US-ABBVIE-13P-163-1065093-00

PATIENT
  Sex: Male
  Weight: 79.45 kg

DRUGS (2)
  1. HUMIRA [Suspect]
     Indication: PSORIASIS
     Route: 058
     Dates: start: 2008, end: 2008
  2. HUMIRA [Suspect]
     Route: 058
     Dates: start: 2011, end: 2011

REACTIONS (2)
  - Drug ineffective [Unknown]
  - Rash [Recovered/Resolved]
